FAERS Safety Report 21680640 (Version 2)
Quarter: 2022Q4

REPORT INFORMATION
  Report Type: Report from Study
  Country: US (occurrence: US)
  Receive Date: 20221205
  Receipt Date: 20221209
  Transmission Date: 20230113
  Serious: Yes (Hospitalization)
  Sender: FDA-Public Use
  Company Number: US-002147023-NVSC2022US276395

PATIENT
  Age: 74 Year
  Sex: Male
  Weight: 118.9 kg

DRUGS (20)
  1. ENTRESTO [Suspect]
     Active Substance: SACUBITRIL\VALSARTAN
     Indication: Cardiac failure acute
     Dosage: UNK
     Route: 048
     Dates: start: 20220924
  2. HUMULIN 70/30 [Concomitant]
     Active Substance: INSULIN HUMAN
     Indication: Type 2 diabetes mellitus
     Dosage: UNK
     Route: 065
     Dates: start: 20180412
  3. ALBUTEROL SULFATE [Concomitant]
     Active Substance: ALBUTEROL SULFATE
     Indication: Asthma
     Dosage: UNK
     Route: 065
     Dates: start: 20200729
  4. NICOTINE [Concomitant]
     Active Substance: NICOTINE
     Indication: Prophylaxis
     Dosage: UNK
     Route: 065
     Dates: start: 20200312
  5. NITROGLYCERIN [Concomitant]
     Active Substance: NITROGLYCERIN
     Indication: Prophylaxis
     Dosage: UNK
     Route: 065
     Dates: start: 20180101
  6. PANTOPRAZOLE SODIUM [Concomitant]
     Active Substance: PANTOPRAZOLE SODIUM
     Indication: General physical condition
     Dosage: UNK
     Route: 065
     Dates: start: 20200729
  7. POLYETHYLENE GLYCOL 3350 [Concomitant]
     Active Substance: POLYETHYLENE GLYCOL 3350
     Indication: General physical condition
     Dosage: UNK
     Route: 065
     Dates: start: 20180413
  8. TAMSULOSIN [Concomitant]
     Active Substance: TAMSULOSIN
     Indication: Benign prostatic hyperplasia
     Dosage: UNK
     Route: 065
     Dates: start: 20141101
  9. TAMSULOSIN [Concomitant]
     Active Substance: TAMSULOSIN
     Indication: Cauda equina syndrome
  10. ELIQUIS [Concomitant]
     Active Substance: APIXABAN
     Indication: Coronary artery thrombosis
     Dosage: UNK
     Route: 065
     Dates: start: 20220922
  11. ASPIRIN [Concomitant]
     Active Substance: ASPIRIN
     Indication: General physical condition
     Dosage: UNK
     Route: 065
     Dates: start: 20131206
  12. ASPIRIN [Concomitant]
     Active Substance: ASPIRIN
     Indication: Coronary artery disease
  13. ATORVASTATIN [Concomitant]
     Active Substance: ATORVASTATIN
     Indication: Hypercholesterolaemia
     Dosage: UNK
     Route: 065
     Dates: start: 201312
  14. TOPROL XL [Concomitant]
     Active Substance: METOPROLOL SUCCINATE
     Indication: Atrial fibrillation
     Dosage: UNK
     Route: 065
     Dates: start: 20220923
  15. TOPROL XL [Concomitant]
     Active Substance: METOPROLOL SUCCINATE
     Indication: Hypertension
  16. FERROUS SULFATE [Concomitant]
     Active Substance: FERROUS SULFATE
     Indication: Anaemia
     Dosage: UNK
     Route: 065
     Dates: start: 20200724
  17. GABAPENTIN [Concomitant]
     Active Substance: GABAPENTIN
     Indication: Neuropathy peripheral
     Dosage: UNK
     Route: 065
     Dates: start: 20150819
  18. ACETAMINOPHEN\HYDROCODONE [Concomitant]
     Active Substance: ACETAMINOPHEN\HYDROCODONE
     Indication: Arthralgia
     Dosage: UNK
     Route: 065
     Dates: start: 20180321
  19. DOCUSATE SODIUM\SENNOSIDE A\SENNOSIDE B [Concomitant]
     Active Substance: DOCUSATE SODIUM\SENNOSIDE A\SENNOSIDE B
     Indication: Constipation prophylaxis
     Dosage: UNK
     Route: 065
     Dates: start: 20180308
  20. ROCEPHIN [Concomitant]
     Active Substance: CEFTRIAXONE SODIUM
     Indication: Urinary tract infection
     Dosage: UNK
     Route: 065
     Dates: start: 20221128

REACTIONS (1)
  - Cardiac failure [Recovering/Resolving]

NARRATIVE: CASE EVENT DATE: 20221128
